FAERS Safety Report 23745181 (Version 1)
Quarter: 2024Q2

REPORT INFORMATION
  Report Type: Spontaneous
  Country: US (occurrence: US)
  Receive Date: 20240416
  Receipt Date: 20240416
  Transmission Date: 20240717
  Serious: No
  Sender: FDA-Public Use
  Company Number: US-SANOFI-02009525

PATIENT
  Sex: Female

DRUGS (1)
  1. PHISOHEX [Suspect]
     Active Substance: HEXACHLOROPHENE
     Indication: Impaired healing
     Dosage: UNK

REACTIONS (1)
  - Expired product administered [Unknown]
